FAERS Safety Report 6497561-8 (Version None)
Quarter: 2009Q4

REPORT INFORMATION
  Report Type: 
  Country: None (occurrence: None)
  Receive Date: 20091215
  Receipt Date: 20091202
  Transmission Date: 20100525
  Serious: Yes (Hospitalization)
  Sender: FDA-Public Use
  Company Number: US-ELI_LILLY_AND_COMPANY-US200912001810

PATIENT
  Sex: Female

DRUGS (7)
  1. FORTEO [Suspect]
     Indication: OSTEOPOROSIS
     Dosage: 20 UG, DAILY (1/D)
     Dates: start: 20080101, end: 20090601
  2. ANTIHYPERTENSIVES [Concomitant]
  3. LEVOXYL [Concomitant]
  4. FLUOXETINE [Concomitant]
  5. SINGULAIR [Concomitant]
  6. QVAR 40 [Concomitant]
  7. PRO-AIR [Concomitant]

REACTIONS (2)
  - PANCREATIC CYST [None]
  - PANCREATITIS ACUTE [None]
